FAERS Safety Report 11457061 (Version 1)
Quarter: 2015Q3

REPORT INFORMATION
  Report Type: Report from Study
  Country: US (occurrence: None)
  Receive Date: 20150902
  Receipt Date: 20150902
  Transmission Date: 20151125
  Serious: Yes (Other)
  Sender: FDA-Public Use
  Company Number: 2015053625

PATIENT
  Sex: Female

DRUGS (2)
  1. STIMATE [Suspect]
     Active Substance: DESMOPRESSIN ACETATE
     Indication: PRODUCT USED FOR UNKNOWN INDICATION
  2. HUMATE-P [Suspect]
     Active Substance: HUMAN COAGULATION FACTOR VIII/VON WILLEBRAND FACTOR COMPLEX
     Indication: PRODUCT USED FOR UNKNOWN INDICATION

REACTIONS (7)
  - Pre-eclampsia [None]
  - Iron deficiency anaemia [None]
  - Exposure during pregnancy [None]
  - Tympanoplasty [None]
  - Abortion spontaneous [None]
  - Menorrhagia [None]
  - Sexually transmitted disease [None]
